FAERS Safety Report 12851842 (Version 3)
Quarter: 2016Q4

REPORT INFORMATION
  Report Type: Spontaneous
  Country: US (occurrence: US)
  Receive Date: 20161017
  Receipt Date: 20161205
  Transmission Date: 20170207
  Serious: No
  Sender: FDA-Public Use
  Company Number: US-ASTRAZENECA-2016SF03757

PATIENT
  Age: 968 Month
  Sex: Female
  Weight: 71.2 kg

DRUGS (12)
  1. SYMBICORT [Suspect]
     Active Substance: BUDESONIDE\FORMOTEROL FUMARATE DIHYDRATE
     Indication: SARCOIDOSIS
     Dosage: 160/4.5 MCG, 2 PUFFS TWICE DAY
     Route: 055
     Dates: start: 201604
  2. SYMBICORT [Suspect]
     Active Substance: BUDESONIDE\FORMOTEROL FUMARATE DIHYDRATE
     Indication: DYSPNOEA
     Dosage: 160/4.5 MCG, ONE PUFF DAILY
     Route: 055
     Dates: start: 20160719
  3. SYMBICORT [Suspect]
     Active Substance: BUDESONIDE\FORMOTEROL FUMARATE DIHYDRATE
     Indication: DYSPNOEA
     Dosage: 160/4.5 MCG, TWO PUFFS TWO TIMES A DAY
     Route: 055
     Dates: start: 201608
  4. OXYBUTYNIN [Concomitant]
     Active Substance: OXYBUTYNIN
     Indication: BLADDER DISORDER
     Route: 048
  5. PROAIR HFA [Concomitant]
     Active Substance: ALBUTEROL SULFATE
     Indication: DYSPNOEA
     Dosage: TWO PUFFS EVERY 4-6 HOURS IF NEEDED
     Route: 055
  6. AMLODIPINE BESLATE [Concomitant]
     Indication: BLOOD PRESSURE ABNORMAL
     Route: 048
     Dates: start: 2006
  7. SYMBICORT [Suspect]
     Active Substance: BUDESONIDE\FORMOTEROL FUMARATE DIHYDRATE
     Indication: SARCOIDOSIS
     Dosage: 160/4.5 MCG, ONE PUFF DAILY
     Route: 055
     Dates: start: 20160719
  8. SYMBICORT [Suspect]
     Active Substance: BUDESONIDE\FORMOTEROL FUMARATE DIHYDRATE
     Indication: SARCOIDOSIS
     Dosage: 160/4.5 MCG, TWO PUFFS TWO TIMES A DAY
     Route: 055
     Dates: start: 201608
  9. ALBUTEROL NEBULIZER [Concomitant]
     Active Substance: ALBUTEROL
     Indication: DYSPNOEA
     Dosage: ONE UNI DOSE TWICE PER DAY
     Route: 055
  10. SYMBICORT [Suspect]
     Active Substance: BUDESONIDE\FORMOTEROL FUMARATE DIHYDRATE
     Indication: DYSPNOEA
     Dosage: 160/4.5 MCG, 2 PUFFS TWICE DAY
     Route: 055
     Dates: start: 201604
  11. LOVASTATIN. [Concomitant]
     Active Substance: LOVASTATIN
     Indication: BLOOD CHOLESTEROL ABNORMAL
     Route: 048
  12. PRIMIDONE. [Concomitant]
     Active Substance: PRIMIDONE
     Indication: TREMOR
     Route: 048
     Dates: start: 2016

REACTIONS (11)
  - Fatigue [Unknown]
  - Dysphonia [Unknown]
  - Mouth haemorrhage [Unknown]
  - Pharyngeal haemorrhage [Unknown]
  - Thrombosis [Unknown]
  - Off label use [Unknown]
  - Speech disorder [Unknown]
  - Intentional product misuse [Unknown]
  - Dyspnoea [Not Recovered/Not Resolved]
  - Memory impairment [Unknown]
  - Product use issue [Unknown]

NARRATIVE: CASE EVENT DATE: 201608
